FAERS Safety Report 14232364 (Version 1)
Quarter: 2017Q4

REPORT INFORMATION
  Report Type: Spontaneous
  Country: US (occurrence: US)
  Receive Date: 20171128
  Receipt Date: 20171128
  Transmission Date: 20180321
  Serious: Yes (Other)
  Sender: FDA-Public Use
  Company Number: US-BAUSCH-BL-2017-032003

PATIENT
  Age: 51 Year
  Sex: Male

DRUGS (3)
  1. PRIMIDONE. [Suspect]
     Active Substance: PRIMIDONE
     Indication: HOLMES TREMOR
     Route: 065
  2. DIMETHYL FUMARATE [Concomitant]
     Active Substance: DIMETHYL FUMARATE
     Indication: MULTIPLE SCLEROSIS
  3. PRIMIDONE. [Suspect]
     Active Substance: PRIMIDONE
     Indication: PROGRESSIVE MULTIFOCAL LEUKOENCEPHALOPATHY

REACTIONS (1)
  - Drug ineffective [Unknown]
